FAERS Safety Report 11376851 (Version 2)
Quarter: 2015Q4

REPORT INFORMATION
  Report Type: Spontaneous
  Country: IT (occurrence: IT)
  Receive Date: 20150813
  Receipt Date: 20151001
  Transmission Date: 20160304
  Serious: Yes (Other)
  Sender: FDA-Public Use
  Company Number: PHHY2015IT094625

PATIENT
  Age: 38 Year
  Sex: Male
  Weight: 90 kg

DRUGS (1)
  1. CLOZAPINA HEXAL [Suspect]
     Active Substance: CLOZAPINE
     Indication: SCHIZOPHRENIA, PARANOID TYPE
     Dosage: 300 MG, QD
     Route: 048
     Dates: start: 20150615, end: 20150618

REACTIONS (2)
  - Circulatory collapse [Recovered/Resolved]
  - Sedation [Recovered/Resolved]

NARRATIVE: CASE EVENT DATE: 20150615
